FAERS Safety Report 14293227 (Version 2)
Quarter: 2017Q4

REPORT INFORMATION
  Report Type: Spontaneous
  Country: US (occurrence: US)
  Receive Date: 20171215
  Receipt Date: 20171221
  Transmission Date: 20180321
  Serious: Yes (Other)
  Sender: FDA-Public Use
  Company Number: US-ALLERGAN-1771191US

PATIENT
  Age: 24 Year
  Sex: Female

DRUGS (3)
  1. LABETALOL [Concomitant]
     Active Substance: LABETALOL\LABETALOL HYDROCHLORIDE
     Indication: HYPERTENSION
     Dosage: 200 MG, BID
     Route: 065
  2. LEVONORGESTREL UNK [Suspect]
     Active Substance: LEVONORGESTREL
     Indication: PRODUCT USED FOR UNKNOWN INDICATION
     Dosage: 52 MG
     Route: 015
  3. METOPROLOL. [Concomitant]
     Active Substance: METOPROLOL
     Indication: PRODUCT USED FOR UNKNOWN INDICATION
     Route: 065

REACTIONS (8)
  - Cholestasis [Recovered/Resolved]
  - Nausea [Recovered/Resolved]
  - Hepatitis [Recovered/Resolved]
  - Vomiting [Recovered/Resolved]
  - Gallbladder disorder [Unknown]
  - Abdominal pain upper [Recovered/Resolved]
  - Cholelithiasis [Recovered/Resolved]
  - Liver injury [Recovering/Resolving]
